FAERS Safety Report 5415163-9 (Version None)
Quarter: 2007Q3

REPORT INFORMATION
  Report Type: 
  Country: None (occurrence: None)
  Receive Date: 20070815
  Receipt Date: 20070720
  Transmission Date: 20080115
  Serious: No
  Sender: FDA-Public Use
  Company Number: A0662267A

PATIENT
  Age: 55 Year
  Sex: Female
  Weight: 97.3 kg

DRUGS (1)
  1. COREG CR [Suspect]
     Indication: HYPERTENSION
     Dosage: 80MG SINGLE DOSE
     Route: 048
     Dates: start: 20070626, end: 20070627

REACTIONS (5)
  - DYSPHAGIA [None]
  - DYSPNOEA [None]
  - HYPERSENSITIVITY [None]
  - RASH [None]
  - SENSATION OF FOREIGN BODY [None]
